FAERS Safety Report 6614210-6 (Version None)
Quarter: 2010Q1

REPORT INFORMATION
  Report Type: 
  Country: None (occurrence: None)
  Receive Date: 20100304
  Receipt Date: 20100223
  Transmission Date: 20100710
  Serious: Yes (Life-Threatening, Other)
  Sender: FDA-Public Use
  Company Number: JP-PFIZER INC-2010007426

PATIENT
  Age: 70 Year
  Sex: Male
  Weight: 74 kg

DRUGS (6)
  1. VFEND [Suspect]
     Indication: BRONCHOPULMONARY ASPERGILLOSIS
     Dosage: 200 MG, 2X/DAY
     Route: 048
     Dates: end: 20100101
  2. CYLOCIDE [Concomitant]
     Dates: start: 20091201
  3. ACLACINON [Concomitant]
     Dosage: UNK
     Dates: start: 20091201
  4. ACLACINON [Concomitant]
     Dosage: UNK
     Route: 058
     Dates: start: 20100105, end: 20100118
  5. NEUPOGEN [Concomitant]
     Dates: start: 20091201
  6. TAKEPRON [Concomitant]
     Dosage: UNK
     Route: 048

REACTIONS (2)
  - CARDIAC ARREST [None]
  - TORSADE DE POINTES [None]
